FAERS Safety Report 8903462 (Version 1)
Quarter: 2012Q4

REPORT INFORMATION
  Report Type: Report from Study
  Country: CA (occurrence: CA)
  Receive Date: 20121113
  Receipt Date: 20121113
  Transmission Date: 20130627
  Serious: Yes (Other)
  Sender: FDA-Public Use
  Company Number: CA-JNJFOC-20121102496

PATIENT
  Age: 43 Year
  Sex: Female
  Weight: 104.6 kg

DRUGS (5)
  1. REMICADE [Suspect]
     Indication: CROHN^S DISEASE
     Route: 042
     Dates: start: 200601
  2. MULTIVITAMINS [Concomitant]
     Route: 065
  3. VITAMIN D [Concomitant]
     Route: 065
  4. PREDNISONE [Concomitant]
     Route: 065
  5. FOLIC ACID [Concomitant]
     Route: 065

REACTIONS (1)
  - Surgery [Recovering/Resolving]
